FAERS Safety Report 8289133-X (Version None)
Quarter: 2012Q2

REPORT INFORMATION
  Report Type: 
  Country: None (occurrence: None)
  Receive Date: 20120417
  Receipt Date: 20120404
  Transmission Date: 20120825
  Serious: Yes (Hospitalization, Other)
  Sender: FDA-Public Use
  Company Number: OM-NOVOPROD-348019

PATIENT
  Age: 59 Year
  Sex: Male
  Weight: 106 kg

DRUGS (13)
  1. VICTOZA [Suspect]
     Indication: TYPE 2 DIABETES MELLITUS
     Dosage: 0.6 MG, QD
     Route: 065
     Dates: start: 20120101
  2. PLAVIX [Concomitant]
  3. VICTOZA [Suspect]
     Dosage: 1.2 MG, QD
     Route: 065
  4. VICTOZA [Suspect]
     Dosage: 0.6 MG, QD
     Route: 065
  5. SIMVASTATIN [Concomitant]
  6. BISOPROLOL FUMARATE [Concomitant]
  7. LYRICA [Concomitant]
  8. VICTOZA [Suspect]
     Dosage: 1.2 MG, QD
     Route: 065
     Dates: end: 20120303
  9. NEUROBION                          /00091901/ [Concomitant]
  10. CYMBALTA [Concomitant]
  11. ECOSPRIN [Concomitant]
  12. GLUCOPHAGE [Concomitant]
  13. IRBESARTAN [Concomitant]

REACTIONS (2)
  - GASTRITIS [None]
  - PANCREATITIS [None]
